FAERS Safety Report 9858534 (Version 1)
Quarter: 2014Q1

REPORT INFORMATION
  Report Type: Spontaneous
  Country: US (occurrence: None)
  Receive Date: 20140130
  Receipt Date: 20140130
  Transmission Date: 20141002
  Serious: Yes (Other)
  Sender: FDA-Public Use
  Company Number: None

PATIENT
  Age: 85 Year
  Sex: Male

DRUGS (1)
  1. ZYTIGA [Suspect]
     Dosage: 250 MG TABS, TAKE 4 DAILY?
     Route: 048
     Dates: start: 20140104, end: 20140128

REACTIONS (2)
  - Hot flush [None]
  - Dyspnoea [None]
